FAERS Safety Report 22083848 (Version 2)
Quarter: 2023Q1

REPORT INFORMATION
  Report Type: Spontaneous
  Country: IN (occurrence: IN)
  Receive Date: 20230310
  Receipt Date: 20230317
  Transmission Date: 20230417
  Serious: Yes (Other)
  Sender: FDA-Public Use
  Company Number: IN-TORRENT-00003215

PATIENT
  Age: 28 Year
  Sex: Male

DRUGS (2)
  1. RISPERIDONE [Interacting]
     Active Substance: RISPERIDONE
     Indication: Psychiatric symptom
     Dosage: 12 TABLETS ALL AT ONCE
     Route: 048
  2. EPHEDRINE [Interacting]
     Active Substance: EPHEDRINE
     Indication: Allergic sinusitis
     Dosage: UNKNOWN, NASAL DECONGESTANT SPRAY
     Route: 045

REACTIONS (4)
  - Drug abuse [Unknown]
  - Priapism [Recovered/Resolved]
  - Intentional overdose [Unknown]
  - Drug interaction [Unknown]
